FAERS Safety Report 8056034-1 (Version None)
Quarter: 2012Q1

REPORT INFORMATION
  Report Type: 
  Country: None (occurrence: None)
  Receive Date: 20120119
  Receipt Date: 20120110
  Transmission Date: 20120608
  Serious: Yes (Hospitalization, Other)
  Sender: FDA-Public Use
  Company Number: US-ALEXION PHARMACEUTICALS INC.-A201101647

PATIENT
  Sex: Female
  Weight: 72.1 kg

DRUGS (7)
  1. MIRALAX [Concomitant]
     Dosage: UNK
  2. SOLIRIS [Suspect]
     Indication: PAROXYSMAL NOCTURNAL HAEMOGLOBINURIA
     Dosage: 900 MG, Q2W
     Route: 042
     Dates: start: 20090828
  3. KEPPRA [Concomitant]
     Dosage: 1 G, BID
     Dates: start: 20060101
  4. ACETAZOLAMIDE [Concomitant]
     Dosage: 250 MG, BID
  5. COLACE [Concomitant]
     Dosage: UNK
  6. NORCO [Concomitant]
     Dosage: UNK
  7. IRON [Concomitant]
     Dosage: UNK

REACTIONS (8)
  - SEPSIS [None]
  - BACK PAIN [None]
  - HEADACHE [None]
  - GONORRHOEA [None]
  - HYPOTENSION [None]
  - VOMITING [None]
  - DIZZINESS [None]
  - CHEST PAIN [None]
